FAERS Safety Report 10145638 (Version 3)
Quarter: 2014Q2

REPORT INFORMATION
  Report Type: Spontaneous
  Country: US (occurrence: None)
  Receive Date: 20140429
  Receipt Date: 20140620
  Transmission Date: 20141212
  Serious: Yes (Other)
  Sender: FDA-Public Use
  Company Number: AUR-APL-2014-04962

PATIENT
  Age: 84 Year
  Sex: Female

DRUGS (1)
  1. LOSARTAN POTASSIUM AND HYDROCHLOROTHIAZIDE TABLETS 100 MG/25 MG (LOSARTAN, HYDROCHLOROTHIAZIDE) TABLET, 100+25MG [Suspect]
     Indication: HYPERTENSION
     Dosage: 100MG/25MG (1 IN 1 D), ORAL
     Route: 048
     Dates: start: 201401

REACTIONS (2)
  - Fall [None]
  - Injury [None]
